FAERS Safety Report 23292728 (Version 1)
Quarter: 2023Q4

REPORT INFORMATION
  Report Type: Spontaneous
  Country: US (occurrence: US)
  Receive Date: 20231213
  Receipt Date: 20231213
  Transmission Date: 20240110
  Serious: No
  Sender: FDA-Public Use
  Company Number: US-SANOFI-01870455

PATIENT
  Sex: Female

DRUGS (1)
  1. LANTUS [Suspect]
     Active Substance: INSULIN GLARGINE
     Dosage: 50 IU, BID (50 UNITS IN THE MORNING AND 50 UNITS IN THE EVENING)

REACTIONS (1)
  - Inappropriate schedule of product administration [Unknown]
